FAERS Safety Report 12844971 (Version 3)
Quarter: 2016Q4

REPORT INFORMATION
  Report Type: Report from Study
  Country: FR (occurrence: FR)
  Receive Date: 20161013
  Receipt Date: 20161103
  Transmission Date: 20170207
  Serious: Yes (Hospitalization)
  Sender: FDA-Public Use
  Company Number: FR-TAKEDA-2016MPI008814

PATIENT
  Age: 48 Year
  Sex: Male
  Weight: 102 kg

DRUGS (23)
  1. THALIDOMIDE [Suspect]
     Active Substance: THALIDOMIDE
     Indication: PLASMA CELL MYELOMA
     Dosage: 100 MG, UNK
     Route: 048
     Dates: start: 20160929
  2. GAVISCON                           /00237601/ [Concomitant]
     Active Substance: ALUMINUM HYDROXIDE\MAGNESIUM CARBONATE
     Dosage: UNK
     Route: 065
  3. SINTROM [Concomitant]
     Active Substance: ACENOCOUMAROL
     Dosage: 0.5 MG, QD
     Route: 065
  4. FUNGIZONE [Concomitant]
     Active Substance: AMPHOTERICIN B
     Dosage: UNK
     Route: 065
  5. OXYCONTIN [Concomitant]
     Active Substance: OXYCODONE HYDROCHLORIDE
     Dosage: 25 MG, BID
     Route: 065
  6. LEDERFOLIN [Concomitant]
     Active Substance: LEUCOVORIN CALCIUM
     Dosage: 25 MG, 1/WEEK
     Route: 065
  7. DEXAMETHASONE. [Suspect]
     Active Substance: DEXAMETHASONE
     Indication: PLASMA CELL MYELOMA
     Dosage: 20 MG, UNK
     Route: 048
     Dates: start: 20160929
  8. CLAMOXYL                           /00249601/ [Concomitant]
     Active Substance: AMOXICILLIN
     Dosage: 500 MG, BID
     Route: 065
  9. ZELITREX [Concomitant]
     Active Substance: VALACYCLOVIR HYDROCHLORIDE
     Dosage: 500 MG, BID
     Route: 065
  10. BACTRIM [Concomitant]
     Active Substance: SULFAMETHOXAZOLE\TRIMETHOPRIM
     Dosage: UNK, Q3WEEKS
     Route: 065
  11. OXYCONTIN [Concomitant]
     Active Substance: OXYCODONE HYDROCHLORIDE
     Dosage: 10 MG, Q4HR
     Route: 065
  12. IMOVANE [Concomitant]
     Active Substance: ZOPICLONE
     Dosage: UNK, QD
     Route: 065
  13. LYRICA [Concomitant]
     Active Substance: PREGABALIN
     Dosage: 25 MG, UNK
     Route: 065
  14. DIFFU K [Concomitant]
     Active Substance: POTASSIUM CHLORIDE
     Dosage: UNK, QD
     Route: 065
  15. INEXIUM                            /01479302/ [Concomitant]
     Active Substance: ESOMEPRAZOLE MAGNESIUM
     Dosage: 20 MG, QD
     Route: 065
  16. VELCADE [Suspect]
     Active Substance: BORTEZOMIB
     Indication: PLASMA CELL MYELOMA
     Dosage: 2.6 MG, UNK
     Route: 058
     Dates: start: 20160929
  17. DARATUMUMAB [Suspect]
     Active Substance: DARATUMUMAB
     Indication: PLASMA CELL MYELOMA
     Dosage: UNK
     Route: 042
  18. SERESTA [Concomitant]
     Active Substance: OXAZEPAM
     Dosage: 50 MG, TID
     Route: 065
  19. BICARBONATE [Concomitant]
     Active Substance: BICARBONATE ION
     Dosage: UNK
     Route: 048
  20. PRIMPERAN [Concomitant]
     Active Substance: METOCLOPRAMIDE HYDROCHLORIDE
     Indication: NAUSEA
     Dosage: 10 MG, UNK
     Route: 065
  21. SMECTA [Concomitant]
     Active Substance: MONTMORILLONITE
     Indication: DIARRHOEA
     Dosage: UNK
     Route: 065
  22. CLAMOXYL                           /00249601/ [Concomitant]
     Active Substance: AMOXICILLIN
     Dosage: 500 MG, BID
     Route: 065
  23. PAMIDRONATE [Concomitant]
     Active Substance: PAMIDRONATE DISODIUM
     Indication: ANKYLOSING SPONDYLITIS
     Dosage: 60 MG, UNK
     Route: 042
     Dates: start: 201610, end: 201610

REACTIONS (1)
  - Chest pain [Recovered/Resolved]

NARRATIVE: CASE EVENT DATE: 20161004
